FAERS Safety Report 25201259 (Version 1)
Quarter: 2025Q2

REPORT INFORMATION
  Report Type: Spontaneous
  Country: US (occurrence: US)
  Receive Date: 20250416
  Receipt Date: 20250416
  Transmission Date: 20250717
  Serious: No
  Sender: AMGEN
  Company Number: US-AMGEN-USASP2025068973

PATIENT
  Sex: Male

DRUGS (1)
  1. NEUPOGEN [Suspect]
     Active Substance: FILGRASTIM
     Indication: Neutropenia
     Route: 065

REACTIONS (3)
  - Musculoskeletal stiffness [Unknown]
  - Bone pain [Unknown]
  - Arthralgia [Unknown]
